FAERS Safety Report 9664495 (Version 1)
Quarter: 2013Q4

REPORT INFORMATION
  Report Type: Spontaneous
  Country: FR (occurrence: FR)
  Receive Date: 20131101
  Receipt Date: 20131101
  Transmission Date: 20140711
  Serious: Yes (Hospitalization)
  Sender: FDA-Public Use
  Company Number: FR-BAXTER-2013BAX041909

PATIENT
  Age: 15 Year
  Sex: Male

DRUGS (2)
  1. ENDOXAN 2000 MG, LYOPHILISAT POUR SOLUTION INJECTABLE [Suspect]
     Indication: PRODUCT USED FOR UNKNOWN INDICATION
     Dosage: 60 MG/KG
     Route: 042
     Dates: start: 20130719, end: 20130720
  2. UROMITEXAN 1 G/10 ML, SOLUTION INJECTABLE POUR PERFUSION EN FLACON [Suspect]
     Indication: PRODUCT USED FOR UNKNOWN INDICATION
     Route: 065
     Dates: start: 20130719, end: 20130720

REACTIONS (1)
  - Cystitis haemorrhagic [Not Recovered/Not Resolved]
